FAERS Safety Report 15919218 (Version 1)
Quarter: 2019Q1

REPORT INFORMATION
  Report Type: Spontaneous
  Country: US (occurrence: US)
  Receive Date: 20190205
  Receipt Date: 20190205
  Transmission Date: 20190417
  Serious: No
  Sender: FDA-Public Use
  Company Number: US-ROCHE-2073578

PATIENT
  Age: 51 Year
  Sex: Female
  Weight: 105.2 kg

DRUGS (4)
  1. XOLAIR [Suspect]
     Active Substance: OMALIZUMAB
     Indication: ASTHMA
  2. AFRIN (UNITED STATES) [Concomitant]
     Route: 045
     Dates: start: 20171226
  3. IPRATROPIUM [Concomitant]
     Active Substance: IPRATROPIUM
     Route: 065
     Dates: start: 20171226
  4. XOLAIR [Suspect]
     Active Substance: OMALIZUMAB
     Indication: ASTHMA
     Route: 058

REACTIONS (10)
  - Sinusitis [Not Recovered/Not Resolved]
  - Cough [Not Recovered/Not Resolved]
  - Wheezing [Not Recovered/Not Resolved]
  - Sinus headache [Not Recovered/Not Resolved]
  - Influenza [Unknown]
  - Drug ineffective [Unknown]
  - Pyrexia [Not Recovered/Not Resolved]
  - Upper-airway cough syndrome [Not Recovered/Not Resolved]
  - Dyspnoea [Not Recovered/Not Resolved]
  - Chest discomfort [Not Recovered/Not Resolved]

NARRATIVE: CASE EVENT DATE: 201710
